FAERS Safety Report 9222401 (Version 1)
Quarter: 2013Q1

REPORT INFORMATION
  Report Type: Spontaneous
  Country: FR (occurrence: None)
  Receive Date: 20120914
  Receipt Date: 20120914
  Transmission Date: 20140127
  Serious: Yes (Hospitalization)
  Sender: FDA-Public Use
  Company Number: JPI-P-014371

PATIENT
  Age: 38 Year
  Sex: Male

DRUGS (3)
  1. XYREM (500 MILLIGRAM/MILLILITERS, SOLUTION) (SODIUM OXYBATE) [Suspect]
     Indication: CATAPLEXY
     Dosage: 4.5 GM (2.25 GM, 2 IN 1 D)
     Route: 048
     Dates: start: 20101014, end: 201101
  2. MODAFINIL [Concomitant]
  3. CLOMIPRAMINE HYDROCHLORIDE [Concomitant]

REACTIONS (5)
  - Sinus disorder [None]
  - Anxiety [None]
  - Therapeutic response decreased [None]
  - Urinary incontinence [None]
  - Faecal incontinence [None]
